FAERS Safety Report 9448089 (Version 2)
Quarter: 2013Q3

REPORT INFORMATION
  Report Type: Spontaneous
  Country: ES (occurrence: ES)
  Receive Date: 20130808
  Receipt Date: 20130819
  Transmission Date: 20140515
  Serious: Yes (Other)
  Sender: FDA-Public Use
  Company Number: ES-RANBAXY-2013RR-72002

PATIENT
  Age: 17 Year
  Sex: Female

DRUGS (2)
  1. AMOXICILLIN/CLAVULANIC ACID [Suspect]
     Indication: PRODUCT USED FOR UNKNOWN INDICATION
     Dosage: UNK
     Route: 065
  2. CEFUROXIME [Suspect]
     Indication: PRODUCT USED FOR UNKNOWN INDICATION
     Dosage: EVERY 8 HOURS
     Route: 065

REACTIONS (2)
  - Face oedema [Recovered/Resolved]
  - Drug eruption [Unknown]
